FAERS Safety Report 7047596-1 (Version None)
Quarter: 2010Q4

REPORT INFORMATION
  Report Type: 
  Country: None (occurrence: None)
  Receive Date: 20101015
  Receipt Date: 20101005
  Transmission Date: 20110411
  Serious: Yes (Life-Threatening)
  Sender: FDA-Public Use
  Company Number: CH-JNJFOC-20100806288

PATIENT
  Sex: Male
  Weight: 113.2 kg

DRUGS (2)
  1. USTEKINUMAB [Suspect]
     Indication: PSORIASIS
     Route: 058
  2. USTEKINUMAB [Suspect]
     Route: 058

REACTIONS (2)
  - GASTRIC CANCER [None]
  - OESOPHAGEAL ADENOCARCINOMA [None]
